FAERS Safety Report 6530577-1 (Version None)
Quarter: 2010Q1

REPORT INFORMATION
  Report Type: 
  Country: None (occurrence: None)
  Receive Date: 20100106
  Receipt Date: 20100106
  Transmission Date: 20100710
  Serious: Yes (Hospitalization)
  Sender: FDA-Public Use
  Company Number: None

PATIENT
  Age: 60 Year
  Sex: Female
  Weight: 88 kg

DRUGS (2)
  1. ACYCLOVIR [Suspect]
     Indication: HEPATIC ENCEPHALOPATHY
     Dosage: 950MG Q 8 HR IV BOLUS
     Route: 040
     Dates: start: 20091104, end: 20091118
  2. PHENYTOIN [Suspect]
     Indication: CONVULSION
     Dosage: 100MG BID PO
     Route: 048
     Dates: start: 20091104, end: 20091108

REACTIONS (2)
  - APLASTIC ANAEMIA [None]
  - BONE MARROW FAILURE [None]
